FAERS Safety Report 5650436-6 (Version None)
Quarter: 2008Q1

REPORT INFORMATION
  Report Type: 
  Country: None (occurrence: None)
  Receive Date: 20080305
  Receipt Date: 20080225
  Transmission Date: 20080703
  Serious: Yes (Other)
  Sender: FDA-Public Use
  Company Number: US-KINGPHARMUSA00001-K200800241

PATIENT

DRUGS (12)
  1. ALTACE [Suspect]
     Dosage: 10 MG, QD
     Route: 048
     Dates: start: 20071210, end: 20080110
  2. LISINOPRIL [Suspect]
     Dosage: 20 MG, QD
     Route: 048
     Dates: start: 20080110, end: 20080121
  3. ADALAT [Concomitant]
     Dosage: 60 MG, UNK
     Route: 048
     Dates: start: 20041101
  4. ASPIRIN [Concomitant]
     Dosage: 75 MG, UNK
     Route: 048
     Dates: start: 20040323
  5. BENDROFLUMETHIAZIDE [Concomitant]
     Dosage: 2.5 MG, UNK
     Route: 048
     Dates: start: 20040817
  6. CHONDROITIN [Concomitant]
     Route: 048
     Dates: start: 20070524
  7. GLUCOSAMINE [Concomitant]
     Route: 048
     Dates: start: 20070524
  8. ACETAMINOPHEN [Concomitant]
     Dosage: 1000 MG, UNK
     Route: 048
     Dates: start: 20070524
  9. PERINDOPRIL [Concomitant]
     Dosage: 8 MG, UNK
     Route: 048
     Dates: start: 20041116, end: 20071210
  10. QVAR 40 [Concomitant]
     Dosage: 100 UG, UNK
     Dates: start: 20070524
  11. SILDENAFIL CITRATE [Concomitant]
     Dosage: 50 MG, UNK
     Route: 048
     Dates: start: 20070719
  12. SIMVASTATIN [Concomitant]
     Dosage: 20 MG, UNK
     Route: 048
     Dates: start: 20070621

REACTIONS (5)
  - CHEST PAIN [None]
  - CONFUSIONAL STATE [None]
  - DRY MOUTH [None]
  - FATIGUE [None]
  - MOOD SWINGS [None]
